FAERS Safety Report 4630220-2 (Version None)
Quarter: 2005Q2

REPORT INFORMATION
  Report Type: 
  Country: None (occurrence: None)
  Receive Date: 20050406
  Receipt Date: 20050331
  Transmission Date: 20051028
  Serious: Yes (Other)
  Sender: FDA-Public Use
  Company Number: DE_050315545

PATIENT
  Age: 52 Year
  Sex: Female

DRUGS (1)
  1. YENTREVE(DULOXETINE HYDROCHLORIDE) [Suspect]
     Indication: BLADDER DISORDER
     Dosage: 20 MG/1 DAY
     Dates: start: 20050210, end: 20050216

REACTIONS (4)
  - DEPRESSION [None]
  - DIZZINESS [None]
  - MALAISE [None]
  - SYNCOPE [None]
